FAERS Safety Report 18307270 (Version 3)
Quarter: 2020Q4

REPORT INFORMATION
  Report Type: Spontaneous
  Country: US (occurrence: US)
  Receive Date: 20200924
  Receipt Date: 20201019
  Transmission Date: 20210113
  Serious: Yes (Other)
  Sender: FDA-Public Use
  Company Number: US-PFIZER INC-2019175559

PATIENT
  Age: 22 Year
  Sex: Female
  Weight: 111.11 kg

DRUGS (2)
  1. GENOTROPIN MQ [Suspect]
     Active Substance: SOMATROPIN
     Dosage: 0.3 MG, DAILY
     Dates: end: 202008
  2. GENOTROPIN MQ [Suspect]
     Active Substance: SOMATROPIN
     Indication: BLOOD GROWTH HORMONE ABNORMAL
     Dosage: 0.3 MG, DAILY
     Dates: start: 201809, end: 202007

REACTIONS (5)
  - Product prescribing error [Unknown]
  - Deep vein thrombosis [Unknown]
  - Asthenia [Unknown]
  - Vascular occlusion [Unknown]
  - Obesity [Unknown]
